FAERS Safety Report 21392070 (Version 1)
Quarter: 2022Q3

REPORT INFORMATION
  Report Type: Spontaneous
  Country: US (occurrence: None)
  Receive Date: 20220928
  Receipt Date: 20220928
  Transmission Date: 20221027
  Serious: Yes (unspecified)
  Sender: FDA-Public Use
  Company Number: None

PATIENT
  Age: 44 Year
  Sex: Female
  Weight: 64.3 kg

DRUGS (3)
  1. TAXOTERE [Suspect]
     Active Substance: DOCETAXEL
     Indication: Breast cancer female
     Dosage: OTHER FREQUENCY : ONE TIME TEST DOSE;?
     Route: 041
     Dates: start: 20220927, end: 20220927
  2. Diphenhydramine 25 mg IVP [Concomitant]
     Dates: start: 20220927, end: 20220927
  3. Methylprednisolone 125 mg IVP [Concomitant]
     Dates: start: 20220927, end: 20220927

REACTIONS (2)
  - Flushing [None]
  - Chest discomfort [None]

NARRATIVE: CASE EVENT DATE: 20220927
